FAERS Safety Report 6653524-0 (Version None)
Quarter: 2010Q1

REPORT INFORMATION
  Report Type: 
  Country: None (occurrence: None)
  Receive Date: 20100326
  Receipt Date: 20100315
  Transmission Date: 20100710
  Serious: Yes (Hospitalization)
  Sender: FDA-Public Use
  Company Number: JP-SANOFI-AVENTIS-F01200800465

PATIENT
  Age: 70 Year
  Sex: Male
  Weight: 75 kg

DRUGS (5)
  1. CLOPIDOGREL BISULFATE [Suspect]
     Indication: LACUNAR INFARCTION
     Dosage: UNIT DOSE: 75 MG
     Route: 048
     Dates: start: 20070419, end: 20070529
  2. CARVEDILOL [Concomitant]
     Indication: HYPERTENSION
     Route: 048
     Dates: start: 20070419
  3. DIOVAN [Concomitant]
     Indication: HYPERTENSION
     Route: 048
     Dates: start: 20070419
  4. FLUITRAN [Concomitant]
     Indication: HYPERTENSION
     Route: 048
     Dates: start: 20070419
  5. SEROQUEL [Concomitant]
     Route: 048
     Dates: start: 20070419

REACTIONS (1)
  - NEPHROLITHIASIS [None]
